FAERS Safety Report 25174766 (Version 3)
Quarter: 2025Q2

REPORT INFORMATION
  Report Type: Spontaneous
  Country: US (occurrence: None)
  Receive Date: 20250408
  Receipt Date: 20250612
  Transmission Date: 20250717
  Serious: Yes (Other)
  Sender: INCYTE
  Company Number: US-INCYTE CORPORATION-2025IN003653

PATIENT
  Age: 12 Year

DRUGS (30)
  1. JAKAFI [Suspect]
     Active Substance: RUXOLITINIB
     Indication: Haemophagocytic lymphohistiocytosis
     Route: 065
  2. JAKAFI [Suspect]
     Active Substance: RUXOLITINIB
     Indication: Still^s disease
     Route: 065
  3. JAKAFI [Suspect]
     Active Substance: RUXOLITINIB
     Indication: Interstitial lung disease
     Dosage: 25 MILLIGRAM, BID
  4. JAKAFI [Suspect]
     Active Substance: RUXOLITINIB
     Indication: Autoinflammatory disease
     Dosage: 25 MILLIGRAM, BID
     Route: 065
  5. JAKAFI [Suspect]
     Active Substance: RUXOLITINIB
     Indication: Product used for unknown indication
  6. CANAKINUMAB [Suspect]
     Active Substance: CANAKINUMAB
     Indication: Autoinflammatory disease
     Route: 065
  7. CANAKINUMAB [Suspect]
     Active Substance: CANAKINUMAB
     Indication: Interstitial lung disease
     Route: 065
  8. CANAKINUMAB [Suspect]
     Active Substance: CANAKINUMAB
     Indication: Still^s disease
     Route: 065
  9. CANAKINUMAB [Suspect]
     Active Substance: CANAKINUMAB
     Indication: Haemophagocytic lymphohistiocytosis
     Route: 065
  10. CANAKINUMAB [Suspect]
     Active Substance: CANAKINUMAB
     Indication: Haemophagocytic lymphohistiocytosis
     Route: 065
  11. ACTEMRA [Concomitant]
     Active Substance: TOCILIZUMAB
     Indication: Autoinflammatory disease
     Dosage: UNK UNK, WEEKLY
  12. ACTEMRA [Concomitant]
     Active Substance: TOCILIZUMAB
     Indication: Interstitial lung disease
  13. ACTEMRA [Concomitant]
     Active Substance: TOCILIZUMAB
     Indication: Still^s disease
  14. ACTEMRA [Concomitant]
     Active Substance: TOCILIZUMAB
     Indication: Haemophagocytic lymphohistiocytosis
  15. ANAKINRA [Concomitant]
     Active Substance: ANAKINRA
     Indication: Autoinflammatory disease
     Dosage: 100 MILLIGRAM, QD
     Route: 065
  16. ANAKINRA [Concomitant]
     Active Substance: ANAKINRA
     Indication: Interstitial lung disease
  17. ANAKINRA [Concomitant]
     Active Substance: ANAKINRA
     Indication: Still^s disease
  18. ANAKINRA [Concomitant]
     Active Substance: ANAKINRA
     Indication: Haemophagocytic lymphohistiocytosis
  19. CELLCEPT [Concomitant]
     Active Substance: MYCOPHENOLATE MOFETIL
     Indication: Autoinflammatory disease
     Route: 065
  20. CELLCEPT [Concomitant]
     Active Substance: MYCOPHENOLATE MOFETIL
     Indication: Interstitial lung disease
     Dosage: 250 MILLIGRAM, QD (EVERY MORNING)
  21. CELLCEPT [Concomitant]
     Active Substance: MYCOPHENOLATE MOFETIL
     Indication: Still^s disease
     Dosage: 1 TABLET (500 MG TOTAL) EVERY MORNING AND 2 TABLETS (1,000 MG TOTAL) NIGHTLY AT BEDRIME
  22. CELLCEPT [Concomitant]
     Active Substance: MYCOPHENOLATE MOFETIL
     Indication: Haemophagocytic lymphohistiocytosis
  23. PRILOSEC [Concomitant]
     Active Substance: OMEPRAZOLE MAGNESIUM
     Indication: Product used for unknown indication
     Route: 065
  24. PRILOSEC [Concomitant]
     Active Substance: OMEPRAZOLE MAGNESIUM
     Dosage: 20 MILLIGRAM, QD
  25. ZYRTEC [Concomitant]
     Active Substance: CETIRIZINE HYDROCHLORIDE
     Indication: Product used for unknown indication
     Dosage: 10 MILLIGRAM, QD
  26. CHOLECALCIFEROL [Concomitant]
     Active Substance: CHOLECALCIFEROL
     Indication: Product used for unknown indication
     Dosage: 1000 UNITS
  27. BENADRYL ALLERGY [Concomitant]
     Active Substance: DIPHENHYDRAMINE HYDROCHLORIDE
     Indication: Product used for unknown indication
     Dosage: 10 MILLILITER, Q8H (25 MG TOTAL)
  28. VITAMIN D2 [Concomitant]
     Active Substance: ERGOCALCIFEROL
     Indication: Product used for unknown indication
  29. METHYLPHENIDATE HYDROCHLORIDE [Concomitant]
     Active Substance: METHYLPHENIDATE HYDROCHLORIDE
     Indication: Product used for unknown indication
     Dosage: 36 MILLIGRAM, QD (EVERY MORNING)
  30. PROTOPIC [Concomitant]
     Active Substance: TACROLIMUS
     Indication: Product used for unknown indication
     Dosage: 0.1 PERCENT, BID

REACTIONS (22)
  - Still^s disease [Unknown]
  - Interstitial lung disease [Unknown]
  - Haemophagocytic lymphohistiocytosis [Unknown]
  - Pneumonia [Unknown]
  - Autoimmune disorder [Unknown]
  - Condition aggravated [Unknown]
  - Viral infection [Unknown]
  - Therapy non-responder [Unknown]
  - Drug intolerance [Unknown]
  - Body temperature increased [Unknown]
  - Pain [Unknown]
  - Eczema [Unknown]
  - Urticaria [Unknown]
  - Wheezing [Unknown]
  - Dyspnoea [Unknown]
  - Dry skin [Unknown]
  - Activated partial thromboplastin time shortened [Unknown]
  - Blood albumin increased [Unknown]
  - Quality of life decreased [Unknown]
  - Lung diffusion test decreased [Unknown]
  - Product dose omission issue [Unknown]
  - Off label use [Unknown]
